FAERS Safety Report 9625486 (Version 3)
Quarter: 2013Q4

REPORT INFORMATION
  Report Type: Spontaneous
  Country: ZA (occurrence: ZA)
  Receive Date: 20131016
  Receipt Date: 20131202
  Transmission Date: 20140711
  Serious: Yes (Other)
  Sender: FDA-Public Use
  Company Number: ZA-PFIZER INC-2013294502

PATIENT
  Age: 76 Year
  Sex: Male

DRUGS (2)
  1. SUTENT [Suspect]
     Indication: GASTROINTESTINAL STROMAL TUMOUR
     Dosage: 50 MG, CYCLIC (28 DAYS FOLLOWED BY REST PERIOD OF 2-3 WEEKS)
     Route: 048
     Dates: start: 2010
  2. LANSOPRAZOLE [Concomitant]

REACTIONS (2)
  - Second primary malignancy [Unknown]
  - Basosquamous carcinoma [Unknown]
